FAERS Safety Report 10766293 (Version 2)
Quarter: 2015Q1

REPORT INFORMATION
  Report Type: Report from Study
  Country: DE (occurrence: DE)
  Receive Date: 20150205
  Receipt Date: 20150320
  Transmission Date: 20150721
  Serious: Yes (Death)
  Sender: FDA-Public Use
  Company Number: DE-BEH-2015048297

PATIENT
  Age: 65 Year
  Sex: Male
  Weight: 81 kg

DRUGS (3)
  1. PRIVIGEN [Suspect]
     Active Substance: HUMAN IMMUNOGLOBULIN G
     Indication: INFECTION
     Dosage: INFUSION RATE MINIMUM: 1.1 ML / MIN MAXIMUM: 1.3 ML / MIN
     Dates: start: 20131031, end: 20131031
  2. PRIVIGEN [Suspect]
     Active Substance: HUMAN IMMUNOGLOBULIN G
     Indication: INFECTION
     Dosage: INFUSION RATE MINIMUM: 1.1 ML / MIN MAXIMUM: 1.3 ML / MIN
     Dates: start: 20131031, end: 20131031
  3. PRIVIGEN [Suspect]
     Active Substance: HUMAN IMMUNOGLOBULIN G
     Indication: SECONDARY IMMUNODEFICIENCY
     Dosage: INFUSION RATE MINIMUM: 1.1 ML / MIN MAXIMUM: 1.3 ML / MIN
     Dates: start: 20131031, end: 20131031

REACTIONS (1)
  - Non-small cell lung cancer [Fatal]
